FAERS Safety Report 4408654-0 (Version None)
Quarter: 2004Q3

REPORT INFORMATION
  Report Type: 
  Country: None (occurrence: None)
  Receive Date: 20040723
  Receipt Date: 20040708
  Transmission Date: 20050211
  Serious: Yes (Hospitalization)
  Sender: FDA-Public Use
  Company Number: 162481

PATIENT
  Age: 47 Year
  Sex: Female

DRUGS (1)
  1. AVONEX [Suspect]
     Indication: MULTIPLE SCLEROSIS
     Dosage: 30 MCG QW IM
     Route: 030
     Dates: start: 19980408

REACTIONS (10)
  - BRAIN NEOPLASM [None]
  - EXTRAOCULAR MUSCLE PARESIS [None]
  - FACIAL PALSY [None]
  - HEADACHE [None]
  - KERATITIS [None]
  - LAGOPHTHALMOS [None]
  - MASS [None]
  - MULTIPLE SCLEROSIS [None]
  - NEURILEMMOMA [None]
  - OPTIC NEURITIS RETROBULBAR [None]
